FAERS Safety Report 6598052-6 (Version None)
Quarter: 2010Q1

REPORT INFORMATION
  Report Type: 
  Country: None (occurrence: None)
  Receive Date: 20100223
  Receipt Date: 20100215
  Transmission Date: 20100710
  Serious: Yes (Life-Threatening, Hospitalization, Other)
  Sender: FDA-Public Use
  Company Number: IT-BRISTOL-MYERS SQUIBB COMPANY-14913586

PATIENT
  Age: 62 Year
  Sex: Male
  Weight: 58 kg

DRUGS (9)
  1. CETUXIMAB [Suspect]
     Indication: HEAD AND NECK CANCER
     Dosage: RECENT DOSE TAKEN ON 23DEC09.
     Route: 042
     Dates: start: 20091119
  2. CISPLATIN [Suspect]
     Indication: HEAD AND NECK CANCER
     Dosage: RECENT DOSE TAKEN ON 15DEC09.
     Route: 042
     Dates: start: 20091119, end: 20091215
  3. CILENGITIDE [Suspect]
     Indication: HEAD AND NECK CANCER
     Dosage: RECENT DOSE TAKEN ON 23DEC09.
     Route: 042
     Dates: start: 20091119
  4. FLUOROURACIL [Suspect]
     Indication: HEAD AND NECK CANCER
     Dosage: RECENT DOSE TAKEN ON 15DEC09. TAKEN ON DAY 1 TO 4 OF THE CYCLE.
     Route: 042
     Dates: start: 20091119, end: 20091215
  5. BISOPROLOL [Concomitant]
     Route: 048
     Dates: start: 20080101
  6. TIOTROPIUM BROMIDE [Concomitant]
     Dosage: 1 DF = 1 CAPSULE A DAY.
     Route: 055
     Dates: start: 20060101
  7. LORAZEPAM [Concomitant]
     Indication: PROPHYLAXIS
     Route: 048
     Dates: start: 20091116
  8. APREPITANT [Concomitant]
     Indication: PROPHYLAXIS
     Route: 048
     Dates: start: 20091119
  9. RANITIDINE HCL [Concomitant]
     Indication: PROPHYLAXIS
     Route: 042
     Dates: start: 20091119

REACTIONS (2)
  - PNEUMONITIS [None]
  - THROMBOCYTOPENIA [None]
